FAERS Safety Report 8115186-5 (Version None)
Quarter: 2012Q1

REPORT INFORMATION
  Report Type: 
  Country: None (occurrence: None)
  Receive Date: 20120123
  Receipt Date: 20120110
  Transmission Date: 20120608
  Serious: Yes (Other)
  Sender: FDA-Public Use
  Company Number: 2011030622

PATIENT
  Sex: Female
  Weight: 58.9676 kg

DRUGS (3)
  1. HIZENTRA [Suspect]
     Indication: HYPOGAMMAGLOBULINAEMIA
     Dosage: (30 ML 1X/WEEK SUBCUTANEOUS), (5 CONSECUTIVE DAYS SUBCUTANEOUS)
     Route: 058
     Dates: start: 20111128
  2. AZITHROMYCIN [Concomitant]
  3. ZYRTEC [Concomitant]

REACTIONS (14)
  - EYE INFECTION [None]
  - DIARRHOEA [None]
  - WEIGHT INCREASED [None]
  - INCREASED TENDENCY TO BRUISE [None]
  - CHEST DISCOMFORT [None]
  - DRUG HYPERSENSITIVITY [None]
  - ORAL INFECTION [None]
  - DYSPNOEA [None]
  - SENSATION OF HEAVINESS [None]
  - OEDEMA [None]
  - FLUID RETENTION [None]
  - ASTHMA [None]
  - ABDOMINAL DISTENSION [None]
  - CONTUSION [None]
